FAERS Safety Report 7372698-X (Version None)
Quarter: 2011Q1

REPORT INFORMATION
  Report Type: 
  Country: None (occurrence: None)
  Receive Date: 20110315
  Receipt Date: 20110302
  Transmission Date: 20110831
  Serious: Yes (Death)
  Sender: FDA-Public Use
  Company Number: 201103009

PATIENT
  Age: 79 Year
  Sex: Female
  Weight: 80.7403 kg

DRUGS (16)
  1. XIAFLEX [Suspect]
     Indication: DUPUYTREN'S CONTRACTURE
     Dosage: 1 IN 1 D, INTRALESTIONAL
     Route: 026
     Dates: start: 20110214, end: 20110214
  2. METPROPLOL (METOPROLOL) [Concomitant]
  3. DIGOXIN [Concomitant]
  4. CALCIUM  600+D (ERGOCALCIFEROL) [Concomitant]
  5. LUTEIN (XANTOFYL) [Concomitant]
  6. VITAMIN D3 (COLECALFCIFEROL) [Concomitant]
  7. MULTIVITAMIN [Concomitant]
  8. MARCAINE [Concomitant]
  9. FISH OIL OMEGA 3 (EICOSAPENTAENOIC ACID) [Concomitant]
  10. MAGNESIUM OXIDE (MAGNESIUM OXIDE) [Concomitant]
  11. DILTIAZEM HCL (DILTAZEM HYDROCHLORIDE) [Concomitant]
  12. LEVOTHYROID (LEVOTHYROXINE) [Concomitant]
  13. COUMADIN [Concomitant]
  14. PRESERVISION EYE VITAMIN AND MINERAL (TETRYZOLINE HYDROCHLORIDE) [Concomitant]
  15. SERTRALINE HCL (SERTRALINE HYROCHLORIDE) [Concomitant]
  16. LIDOCAINE [Concomitant]

REACTIONS (3)
  - SWELLING [None]
  - MYOCARDIAL INFARCTION [None]
  - ECCHYMOSIS [None]
